FAERS Safety Report 15344386 (Version 1)
Quarter: 2018Q3

REPORT INFORMATION
  Report Type: Spontaneous
  Country: IT (occurrence: IT)
  Receive Date: 20180903
  Receipt Date: 20180903
  Transmission Date: 20181010
  Serious: Yes (Hospitalization)
  Sender: FDA-Public Use
  Company Number: IT-PFIZER INC-2018348998

PATIENT
  Age: 39 Year
  Sex: Female

DRUGS (1)
  1. SUTENT [Suspect]
     Active Substance: SUNITINIB MALATE
     Indication: RENAL NEOPLASM
     Dosage: 37.5 MG, CYCLIC
     Route: 048
     Dates: start: 20170918, end: 20180701

REACTIONS (1)
  - Bronchopneumopathy [Recovered/Resolved]

NARRATIVE: CASE EVENT DATE: 20180704
